FAERS Safety Report 9171658 (Version 1)
Quarter: 2013Q1

REPORT INFORMATION
  Report Type: Spontaneous
  Country: MX (occurrence: MX)
  Receive Date: 20130319
  Receipt Date: 20130319
  Transmission Date: 20140127
  Serious: Yes (Death)
  Sender: FDA-Public Use
  Company Number: PHHY2013MX026465

PATIENT
  Age: 86 Year
  Sex: Female

DRUGS (1)
  1. EXELON PATCH [Suspect]
     Indication: NERVOUS SYSTEM DISORDER
     Dosage: 9.5 MG, DAILY
     Route: 062
     Dates: start: 201011

REACTIONS (4)
  - Cerebrovascular accident [Fatal]
  - Polycythaemia [Fatal]
  - Blood viscosity increased [Fatal]
  - Nervous system disorder [Fatal]
